FAERS Safety Report 7609458-8 (Version None)
Quarter: 2011Q3

REPORT INFORMATION
  Report Type: 
  Country: None (occurrence: None)
  Receive Date: 20110714
  Receipt Date: 20110706
  Transmission Date: 20111222
  Serious: Yes (Other)
  Sender: FDA-Public Use
  Company Number: US-BAYER-2010-002655

PATIENT
  Age: 36 Year
  Sex: Female
  Weight: 104 kg

DRUGS (6)
  1. YAZ [Suspect]
     Indication: PREMENSTRUAL SYNDROME
  2. STRATTERA [Concomitant]
     Indication: ATTENTION DEFICIT/HYPERACTIVITY DISORDER
     Dosage: 60 MG, UNK
  3. PROVENTIL [Concomitant]
     Dosage: UNK
     Route: 045
  4. YAZ [Suspect]
     Indication: ACNE
     Dosage: UNK
     Dates: start: 20060801, end: 20081201
  5. YAZ [Suspect]
     Indication: ORAL CONTRACEPTION
  6. STRATTERA [Concomitant]
     Dosage: 80 MG, UNK

REACTIONS (2)
  - PAIN [None]
  - CHOLECYSTITIS CHRONIC [None]
